FAERS Safety Report 9640869 (Version 1)
Quarter: 2013Q4

REPORT INFORMATION
  Report Type: Report from Study
  Country: US (occurrence: US)
  Receive Date: 20131023
  Receipt Date: 20131023
  Transmission Date: 20140711
  Serious: No
  Sender: FDA-Public Use
  Company Number: US-ABBVIE-12P-163-1011946-00

PATIENT
  Age: 51 Year
  Sex: Female

DRUGS (7)
  1. LUPRON DEPOT [Suspect]
     Indication: PRODUCT USED FOR UNKNOWN INDICATION
     Dates: start: 201206
  2. ANAPROX [Concomitant]
     Indication: PRODUCT USED FOR UNKNOWN INDICATION
  3. LISINPORIL [Concomitant]
     Indication: HYPERTENSION
     Dates: start: 201206
  4. NORTHINDRONE ACETATE [Concomitant]
     Indication: OESTROGEN REPLACEMENT THERAPY
  5. AMLODIPINE [Concomitant]
     Indication: HYPERTENSION
     Dates: start: 20121026
  6. ACYCLOVIR [Concomitant]
     Indication: PRODUCT USED FOR UNKNOWN INDICATION
     Dates: start: 20120723
  7. NORVASC [Concomitant]
     Indication: HYPERTENSION
     Dates: start: 201211

REACTIONS (4)
  - Lip swelling [Recovering/Resolving]
  - Urticaria [Recovering/Resolving]
  - Pharyngeal oedema [Recovering/Resolving]
  - Hypersensitivity [Recovering/Resolving]
